FAERS Safety Report 6582157-X (Version None)
Quarter: 2010Q1

REPORT INFORMATION
  Report Type: 
  Country: None (occurrence: None)
  Receive Date: 20100212
  Receipt Date: 20100212
  Transmission Date: 20100710
  Serious: No
  Sender: FDA-Public Use
  Company Number: None

PATIENT
  Age: 80 Year
  Sex: Female

DRUGS (9)
  1. WELLBUTRIN [Suspect]
     Indication: DEPRESSION
     Dosage: 150MG  ONCE DAILY PO, STARTED IN WINTER, 2008
     Route: 048
     Dates: start: 20080101
  2. TRIAMTERENE AND HYDROCHLOROTHIAZIDE [Concomitant]
  3. ATENOLOL [Concomitant]
  4. DETROL [Concomitant]
  5. SIMVASTATIN [Concomitant]
  6. COUMADIN [Concomitant]
  7. PULMICORT [Concomitant]
  8. ALBUTEROL [Concomitant]
  9. ASPIRIN [Concomitant]

REACTIONS (1)
  - DYSKINESIA [None]
